FAERS Safety Report 7706307-4 (Version None)
Quarter: 2011Q3

REPORT INFORMATION
  Report Type: 
  Country: None (occurrence: None)
  Receive Date: 20110824
  Receipt Date: 20110817
  Transmission Date: 20111222
  Serious: Yes (Hospitalization)
  Sender: FDA-Public Use
  Company Number: JP-ROCHE-788805

PATIENT
  Sex: Female

DRUGS (15)
  1. ROCEPHIN [Suspect]
     Route: 042
     Dates: start: 20110621, end: 20110625
  2. NOVOLIN R [Concomitant]
     Dosage: NON-DIALYSIS DAY
     Route: 058
  3. BISOPROLOL FUMARATE [Concomitant]
     Route: 048
  4. SIGMART [Concomitant]
     Route: 048
  5. WASSER V [Concomitant]
     Dosage: DIALYSIS DAY
     Route: 048
  6. FOLIC ACID [Concomitant]
     Dosage: DIALYSIS DAY
     Route: 048
  7. ROCEPHIN [Suspect]
     Indication: GANGRENE
     Route: 042
  8. NOVOLIN R [Concomitant]
     Dosage: NOTE: DIALYSIS DAY
     Route: 058
  9. PLAVIX [Concomitant]
     Route: 048
  10. LANSOPRAZOLE [Concomitant]
     Route: 048
  11. ALFAROL [Concomitant]
     Route: 048
  12. ENALAPRIL MALEATE [Concomitant]
     Dosage: DIALYSIS DAY
     Route: 048
  13. ROCEPHIN [Suspect]
     Route: 042
     Dates: start: 20100803, end: 20100809
  14. ENALAPRIL MALEATE [Concomitant]
     Route: 048
  15. ASPIRIN [Concomitant]
     Route: 048

REACTIONS (1)
  - ALTERED STATE OF CONSCIOUSNESS [None]
